FAERS Safety Report 7761879-9 (Version None)
Quarter: 2011Q3

REPORT INFORMATION
  Report Type: 
  Country: None (occurrence: None)
  Receive Date: 20110920
  Receipt Date: 20110912
  Transmission Date: 20111222
  Serious: Yes (Other)
  Sender: FDA-Public Use
  Company Number: US-GENZYME-FABR-1002097

PATIENT
  Sex: Male
  Weight: 60 kg

DRUGS (1)
  1. FABRAZYME [Suspect]
     Indication: FABRY'S DISEASE
     Dosage: 30 MG, Q2W
     Route: 042
     Dates: start: 20060801

REACTIONS (2)
  - THROMBOSIS [None]
  - TRANSIENT ISCHAEMIC ATTACK [None]
